FAERS Safety Report 4354733-6 (Version None)
Quarter: 2004Q2

REPORT INFORMATION
  Report Type: 
  Country: None (occurrence: None)
  Receive Date: 20040503
  Receipt Date: 20040422
  Transmission Date: 20050107
  Serious: Yes (Other)
  Sender: FDA-Public Use
  Company Number: US-JNJFOC-20040405091

PATIENT
  Age: 91 Year
  Sex: Female

DRUGS (3)
  1. DURAGESIC [Suspect]
     Indication: PAIN
     Dosage: SEE IMAGE
     Route: 062
     Dates: start: 20031201
  2. OXYCODONE (OXYCODONE) TABLETS [Concomitant]
  3. SYNTHROID (LEVOTHYROXINE SODIUM) TABLETS [Concomitant]

REACTIONS (8)
  - ANXIETY [None]
  - CONFUSIONAL STATE [None]
  - DEHYDRATION [None]
  - DIARRHOEA [None]
  - DISORIENTATION [None]
  - NAUSEA [None]
  - RENAL FAILURE [None]
  - VOMITING [None]
